FAERS Safety Report 18843312 (Version 2)
Quarter: 2021Q2

REPORT INFORMATION
  Report Type: Spontaneous
  Country: JP (occurrence: JP)
  Receive Date: 20210204
  Receipt Date: 20210617
  Transmission Date: 20210717
  Serious: Yes (Hospitalization)
  Sender: FDA-Public Use
  Company Number: JP-ROCHE-2762988

PATIENT
  Sex: Male

DRUGS (3)
  1. TECENTRIQ [Suspect]
     Active Substance: ATEZOLIZUMAB
     Indication: NON-SMALL CELL LUNG CANCER
     Dosage: DOSAGE IS UNCERTAIN.
     Route: 041
  2. CARBOPLATIN. [Concomitant]
     Active Substance: CARBOPLATIN
     Indication: NON-SMALL CELL LUNG CANCER
     Dosage: DOSAGE IS UNCERTAIN.
     Route: 041
  3. PACLITAXEL ALBUMIN [Concomitant]
     Active Substance: PACLITAXEL
     Indication: NON-SMALL CELL LUNG CANCER
     Dosage: DOSAGE IS UNCERTAIN.
     Route: 041

REACTIONS (4)
  - Pancreatitis [Recovered/Resolved]
  - Skin disorder [Recovered/Resolved]
  - Platelet count decreased [Unknown]
  - Renal disorder [Recovered/Resolved]
